FAERS Safety Report 6344602-4 (Version None)
Quarter: 2009Q3

REPORT INFORMATION
  Report Type: 
  Country: None (occurrence: None)
  Receive Date: 20090908
  Receipt Date: 20090821
  Transmission Date: 20100115
  Serious: Yes (Hospitalization)
  Sender: FDA-Public Use
  Company Number: NL-ABBOTT-09P-114-0585618-00

PATIENT
  Sex: Female
  Weight: 49.9 kg

DRUGS (7)
  1. HUMIRA [Suspect]
     Indication: RHEUMATOID ARTHRITIS
     Route: 058
     Dates: start: 20090206
  2. METHOTREXATE [Concomitant]
     Indication: RHEUMATOID ARTHRITIS
     Route: 048
     Dates: start: 20081010
  3. DIAZEPAM [Concomitant]
     Indication: DRUG USE FOR UNKNOWN INDICATION
  4. OMEPRAZOL [Concomitant]
     Indication: DRUG USE FOR UNKNOWN INDICATION
  5. FOLIC ACID [Concomitant]
     Indication: DRUG USE FOR UNKNOWN INDICATION
  6. ARTHROTEC [Concomitant]
     Indication: DRUG USE FOR UNKNOWN INDICATION
  7. ACTONEL [Concomitant]
     Indication: DRUG USE FOR UNKNOWN INDICATION

REACTIONS (4)
  - APHASIA [None]
  - APRAXIA [None]
  - CEREBROVASCULAR ACCIDENT [None]
  - DYSARTHRIA [None]
